FAERS Safety Report 5916088-2 (Version None)
Quarter: 2008Q4

REPORT INFORMATION
  Report Type: 
  Country: None (occurrence: None)
  Receive Date: 20081013
  Receipt Date: 20081001
  Transmission Date: 20090506
  Serious: Yes (Other)
  Sender: FDA-Public Use
  Company Number: US-CELGENEUS-163-21880-08100378

PATIENT

DRUGS (2)
  1. REVLIMID [Suspect]
     Route: 048
     Dates: start: 20080521
  2. CC779 [Suspect]
     Route: 051
     Dates: start: 20080521

REACTIONS (1)
  - HYPOPHOSPHATAEMIA [None]
